FAERS Safety Report 4293712-4 (Version None)
Quarter: 2004Q1

REPORT INFORMATION
  Report Type: 
  Country: None (occurrence: None)
  Receive Date: 20040212
  Receipt Date: 20030602
  Transmission Date: 20041129
  Serious: Yes (Other)
  Sender: FDA-Public Use
  Company Number: US-GLAXOSMITHKLINE-A0410325A

PATIENT
  Age: 48 Year
  Sex: Female

DRUGS (3)
  1. PAXIL [Suspect]
     Indication: DEPRESSION
     Route: 048
  2. ZOLOFT [Suspect]
  3. ALCOHOL [Concomitant]
     Route: 048

REACTIONS (9)
  - AFFECT LABILITY [None]
  - AKATHISIA [None]
  - AMNESIA [None]
  - BREAST CANCER [None]
  - DISINHIBITION [None]
  - DISSOCIATION [None]
  - FEELING JITTERY [None]
  - MURDER [None]
  - SPEECH DISORDER [None]
